FAERS Safety Report 9019389 (Version 1)
Quarter: 2013Q1

REPORT INFORMATION
  Report Type: Spontaneous
  Country: US (occurrence: US)
  Receive Date: 20130118
  Receipt Date: 20130118
  Transmission Date: 20140127
  Serious: Yes (Congenital Anomaly, Other)
  Sender: FDA-Public Use
  Company Number: US-PFIZER INC-2011288482

PATIENT
  Sex: Male

DRUGS (10)
  1. ZOLOFT [Suspect]
     Dosage: UNK
     Route: 064
     Dates: start: 20050118, end: 20060406
  2. NITROFURANTOIN MONO/MAC [Concomitant]
     Dosage: UNK
     Route: 064
  3. CEPHALEXIN [Concomitant]
     Dosage: UNK
     Route: 064
  4. AZITHROMYCIN [Concomitant]
     Dosage: UNK
     Route: 064
  5. ERYTHROMYCIN [Concomitant]
     Dosage: UNK
     Route: 064
  6. GYNAZOLE [Concomitant]
     Route: 064
  7. PREDNISONE [Concomitant]
     Dosage: UNK
     Route: 064
  8. HYDROCODONE W/ACETAMINOPHEN [Concomitant]
     Dosage: UNK
     Route: 064
  9. CLARITIN [Concomitant]
     Dosage: UNK
     Route: 064
  10. IBUPROFEN [Concomitant]
     Dosage: UNK
     Route: 064

REACTIONS (2)
  - Maternal exposure timing unspecified [Unknown]
  - Hypospadias [Unknown]
